FAERS Safety Report 8138464-2 (Version None)
Quarter: 2012Q1

REPORT INFORMATION
  Report Type: 
  Country: None (occurrence: None)
  Receive Date: 20120213
  Receipt Date: 20120131
  Transmission Date: 20120608
  Serious: No
  Sender: FDA-Public Use
  Company Number: 1000027431

PATIENT
  Age: 91 Year
  Sex: Female

DRUGS (16)
  1. MEMANTINE HCL [Suspect]
     Indication: ABNORMAL BEHAVIOUR
     Dosage: 5 MG (5 MG, 1 IN 1 D), ORAL; 10 (10 MG, 1 IN 1 D), ORAL
     Route: 048
     Dates: start: 20111109, end: 20111115
  2. MEMANTINE HCL [Suspect]
     Indication: DEMENTIA ALZHEIMER'S TYPE
     Dosage: 5 MG (5 MG, 1 IN 1 D), ORAL; 10 (10 MG, 1 IN 1 D), ORAL
     Route: 048
     Dates: start: 20111109, end: 20111115
  3. MEMANTINE HCL [Suspect]
     Indication: PORIOMANIA
     Dosage: 5 MG (5 MG, 1 IN 1 D), ORAL; 10 (10 MG, 1 IN 1 D), ORAL
     Route: 048
     Dates: start: 20111109, end: 20111115
  4. MEMANTINE HCL [Suspect]
     Indication: ABNORMAL BEHAVIOUR
     Dosage: 5 MG (5 MG, 1 IN 1 D), ORAL; 10 (10 MG, 1 IN 1 D), ORAL
     Route: 048
     Dates: start: 20111102, end: 20111108
  5. MEMANTINE HCL [Suspect]
     Indication: DEMENTIA ALZHEIMER'S TYPE
     Dosage: 5 MG (5 MG, 1 IN 1 D), ORAL; 10 (10 MG, 1 IN 1 D), ORAL
     Route: 048
     Dates: start: 20111102, end: 20111108
  6. MEMANTINE HCL [Suspect]
     Indication: PORIOMANIA
     Dosage: 5 MG (5 MG, 1 IN 1 D), ORAL; 10 (10 MG, 1 IN 1 D), ORAL
     Route: 048
     Dates: start: 20111102, end: 20111108
  7. MEMANTINE HCL [Suspect]
     Indication: DEMENTIA ALZHEIMER'S TYPE
     Dosage: 15 MG (15 MG, 1 IN 1 D), ORAL
     Route: 048
     Dates: start: 20111116, end: 20111117
  8. MEMANTINE HCL [Suspect]
     Indication: PORIOMANIA
     Dosage: 15 MG (15 MG, 1 IN 1 D), ORAL
     Route: 048
     Dates: start: 20111116, end: 20111117
  9. MEMANTINE HCL [Suspect]
     Indication: ABNORMAL BEHAVIOUR
     Dosage: 15 MG (15 MG, 1 IN 1 D), ORAL
     Route: 048
     Dates: start: 20111116, end: 20111117
  10. SORENTMIN (BROTIZOLAM) [Concomitant]
  11. SENNOSIDE (SENNOSIDE A CALCIUM, SENNOSIDE B CALCIUM) [Concomitant]
  12. YOKU-KAN-SAN (HERBAL EXTRACT NOS) [Concomitant]
  13. MEMANTINE HYDROCHLORIDE [Suspect]
     Indication: DEMENTIA ALZHEIMER'S TYPE
     Dosage: 10 MG (10 MG, 1 IN 1 D), ORAL
     Route: 048
     Dates: start: 20111125
  14. MEMANTINE HYDROCHLORIDE [Suspect]
     Indication: ABNORMAL BEHAVIOUR
     Dosage: 10 MG (10 MG, 1 IN 1 D), ORAL
     Route: 048
     Dates: start: 20111125
  15. MEMANTINE HYDROCHLORIDE [Suspect]
     Indication: PORIOMANIA
     Dosage: 10 MG (10 MG, 1 IN 1 D), ORAL
     Route: 048
     Dates: start: 20111125
  16. SEROQUEL [Concomitant]

REACTIONS (2)
  - DYSARTHRIA [None]
  - DIZZINESS [None]
